APPROVED DRUG PRODUCT: RIZAFILM
Active Ingredient: RIZATRIPTAN BENZOATE
Strength: EQ 10MG BASE
Dosage Form/Route: FILM;ORAL
Application: N205394 | Product #001
Applicant: GENSCO LABORATORIES LLC DBA GENSCO PHARMA
Approved: Apr 14, 2023 | RLD: Yes | RS: No | Type: DISCN

PATENTS:
Patent 9301948 | Expires: Jul 30, 2034